FAERS Safety Report 15860896 (Version 3)
Quarter: 2019Q1

REPORT INFORMATION
  Report Type: Spontaneous
  Country: US (occurrence: US)
  Receive Date: 20190124
  Receipt Date: 20190214
  Transmission Date: 20190417
  Serious: Yes (Death)
  Sender: FDA-Public Use
  Company Number: US-CELGENEUS-USA-20190105896

PATIENT
  Age: 56 Year
  Sex: Male

DRUGS (2)
  1. REVLIMID [Suspect]
     Active Substance: LENALIDOMIDE
     Indication: AMYLOIDOSIS
     Dosage: 15 MILLIGRAM
     Route: 048
     Dates: start: 20181128
  2. REVLIMID [Suspect]
     Active Substance: LENALIDOMIDE
     Indication: OFF LABEL USE

REACTIONS (9)
  - Haematochezia [Fatal]
  - Visual impairment [Not Recovered/Not Resolved]
  - Blood urine present [Fatal]
  - Fall [Unknown]
  - Dizziness [Not Recovered/Not Resolved]
  - Acute kidney injury [Fatal]
  - Sepsis [Fatal]
  - Blood pressure decreased [Fatal]
  - Blood pressure abnormal [Not Recovered/Not Resolved]

NARRATIVE: CASE EVENT DATE: 201902
